FAERS Safety Report 6570707-9 (Version None)
Quarter: 2010Q1

REPORT INFORMATION
  Report Type: 
  Country: None (occurrence: None)
  Receive Date: 20100204
  Receipt Date: 20100128
  Transmission Date: 20100710
  Serious: Yes (Hospitalization)
  Sender: FDA-Public Use
  Company Number: B0588861C

PATIENT
  Sex: Male
  Weight: 99.1 kg

DRUGS (8)
  1. LAPATINIB [Suspect]
     Dosage: 750MG PER DAY
     Route: 048
     Dates: start: 20090728
  2. CISPLATIN [Suspect]
     Dosage: 145.6MG PER DAY
     Route: 042
     Dates: start: 20090728
  3. GEMCITABINE [Suspect]
     Dosage: 2000MG PER DAY
     Route: 042
     Dates: start: 20090728
  4. KALEORID [Concomitant]
     Dosage: 750MG TWICE PER DAY
     Route: 048
     Dates: start: 20091020
  5. FURIX [Concomitant]
     Indication: DIURETIC THERAPY
     Dosage: 40MG TWICE PER DAY
     Route: 048
     Dates: start: 20091019
  6. SEREVENT [Concomitant]
     Indication: ASTHMA
     Dosage: 50MG PER DAY
     Route: 055
     Dates: start: 20070814
  7. HJERTEMAGNYL [Concomitant]
     Dosage: 150MG PER DAY
     Route: 048
     Dates: start: 20070814
  8. GLUCOSAMINE [Concomitant]
     Dosage: 400MG THREE TIMES PER DAY
     Route: 048
     Dates: start: 20070814

REACTIONS (4)
  - ANAEMIA [None]
  - HAEMOGLOBIN DECREASED [None]
  - INFECTION [None]
  - PYREXIA [None]
